FAERS Safety Report 6294987-2 (Version None)
Quarter: 2009Q3

REPORT INFORMATION
  Report Type: 
  Country: None (occurrence: None)
  Receive Date: 20090803
  Receipt Date: 20090722
  Transmission Date: 20100115
  Serious: Yes (Hospitalization)
  Sender: FDA-Public Use
  Company Number: JP-MERCK-0907USA04344

PATIENT
  Age: 56 Year
  Sex: Male

DRUGS (5)
  1. SINGULAIR [Suspect]
     Indication: ASTHMA
     Route: 048
  2. PRANLUKAST [Suspect]
     Indication: ASTHMA
     Route: 065
  3. FLUTICASONE PROPIONATE [Concomitant]
     Route: 065
  4. THEOPHYLLINE [Concomitant]
     Route: 065
  5. TULOBUTEROL [Concomitant]
     Route: 065

REACTIONS (1)
  - ALLERGIC GRANULOMATOUS ANGIITIS [None]
